FAERS Safety Report 7409826-3 (Version None)
Quarter: 2011Q2

REPORT INFORMATION
  Report Type: 
  Country: None (occurrence: None)
  Receive Date: 20110412
  Receipt Date: 20110317
  Transmission Date: 20111010
  Serious: Yes (Hospitalization)
  Sender: FDA-Public Use
  Company Number: US-BAYER-201038838NA

PATIENT
  Age: 19 Year
  Sex: Female
  Weight: 54.422 kg

DRUGS (17)
  1. YAZ [Suspect]
     Indication: CONTRACEPTION
     Dosage: UNK
     Dates: start: 20041201
  2. AMOXICILLIN [Concomitant]
     Dosage: UNK
     Dates: start: 19990101
  3. MEPROZINE [Concomitant]
     Dosage: UNK
     Dates: start: 20050301
  4. DEMEROL [Concomitant]
  5. YASMIN [Suspect]
     Indication: ORAL CONTRACEPTION
     Dosage: UNK UNK, QD
     Route: 048
     Dates: start: 20041201
  6. DIAZEPAM [Concomitant]
     Dosage: UNK
     Dates: start: 20050301
  7. OXYCONTIN [Concomitant]
  8. MACROBID [Concomitant]
     Dosage: UNK
     Dates: start: 20041201
  9. SOLIA [Concomitant]
     Dosage: UNK
     Dates: start: 20041101
  10. CEPHALEXIN [Concomitant]
     Dosage: UNK
     Dates: start: 20050301
  11. MOTRIN [Concomitant]
     Dosage: UNK
     Dates: start: 20040101
  12. PENICILLIN [Concomitant]
     Dosage: UNK
     Dates: start: 19990101
  13. OXYCODONE HCL AND ACETAMINOPHEN [Concomitant]
     Dosage: UNK
     Dates: start: 20050301
  14. OCELLA [Suspect]
     Indication: CONTRACEPTION
     Dosage: UNK
     Dates: start: 20041201
  15. IMIPRAMINE [Concomitant]
     Dosage: UNK
     Dates: start: 20041201
  16. DITROPAN [Concomitant]
     Dosage: UNK
     Dates: start: 20041101
  17. DEXAMETHASONE [Concomitant]
     Dosage: UNK
     Dates: start: 20050301

REACTIONS (2)
  - DEPRESSION [None]
  - PULMONARY EMBOLISM [None]
